FAERS Safety Report 4377772-8 (Version None)
Quarter: 2004Q2

REPORT INFORMATION
  Report Type: 
  Country: None (occurrence: None)
  Receive Date: 20040615
  Receipt Date: 20040615
  Transmission Date: 20050107
  Serious: No
  Sender: FDA-Public Use
  Company Number: None

PATIENT
  Sex: Female
  Weight: 68.0396 kg

DRUGS (2)
  1. LIPITOR [Suspect]
     Dosage: 10 MG 20 MG
     Dates: start: 19970101, end: 20030101
  2. LIPITOR [Suspect]
     Dosage: 10 MG 20 MG
     Dates: start: 20030101, end: 20040101

REACTIONS (2)
  - FEELING ABNORMAL [None]
  - PAIN [None]
